FAERS Safety Report 19391255 (Version 4)
Quarter: 2021Q3

REPORT INFORMATION
  Report Type: Spontaneous
  Country: US (occurrence: US)
  Receive Date: 20210609
  Receipt Date: 20210714
  Transmission Date: 20211014
  Serious: No
  Sender: FDA-Public Use
  Company Number: US-ORGANON-O2106USA000628

PATIENT
  Age: 19 Year
  Sex: Female
  Weight: 100.69 kg

DRUGS (2)
  1. NEXPLANON [Suspect]
     Active Substance: ETONOGESTREL
     Indication: CONTRACEPTION
     Dosage: 1 IMPLANT OF 68 MG/ONCE, RIGHT ARM
     Route: 059
     Dates: start: 20200406, end: 20210604
  2. NEXPLANON [Suspect]
     Active Substance: ETONOGESTREL
     Dosage: 1 IMPLANT
     Route: 059
     Dates: start: 20210604

REACTIONS (4)
  - Muscle spasms [Recovering/Resolving]
  - Implant site pain [Recovering/Resolving]
  - Device breakage [Recovered/Resolved]
  - Device placement issue [Recovered/Resolved]

NARRATIVE: CASE EVENT DATE: 20200406
